FAERS Safety Report 10357630 (Version 4)
Quarter: 2015Q1

REPORT INFORMATION
  Report Type: Spontaneous
  Country: US (occurrence: US)
  Receive Date: 20140801
  Receipt Date: 20150120
  Transmission Date: 20150720
  Serious: Yes (Life-Threatening, Hospitalization)
  Sender: FDA-Public Use
  Company Number: US-BAYER-2013-022969

PATIENT
  Age: 21 Year
  Sex: Female
  Weight: 77.98 kg

DRUGS (1)
  1. MIRENA [Suspect]
     Active Substance: LEVONORGESTREL
     Indication: CONTRACEPTION
     Dosage: 20 MCG/24HR, CONT
     Route: 015
     Dates: start: 20080520, end: 20100826

REACTIONS (9)
  - Uterine perforation [None]
  - Medical device discomfort [None]
  - Menorrhagia [None]
  - Injury [None]
  - Medical device pain [None]
  - Abdominal pain lower [None]
  - Dysmenorrhoea [None]
  - General physical health deterioration [None]
  - Device issue [None]

NARRATIVE: CASE EVENT DATE: 2008
